FAERS Safety Report 11592072 (Version 1)
Quarter: 2015Q4

REPORT INFORMATION
  Report Type: Spontaneous
  Country: US (occurrence: US)
  Receive Date: 20151005
  Receipt Date: 20151005
  Transmission Date: 20160304
  Serious: No
  Sender: FDA-Public Use
  Company Number: US-PFIZER INC-2015329356

PATIENT
  Age: 52 Year
  Sex: Male

DRUGS (2)
  1. EFFEXOR XR [Suspect]
     Active Substance: VENLAFAXINE HYDROCHLORIDE
     Dosage: UNK
  2. RISPERDAL [Suspect]
     Active Substance: RISPERIDONE
     Dosage: UNK

REACTIONS (3)
  - Weight loss poor [Unknown]
  - Flat affect [Unknown]
  - Sedation [Unknown]
